FAERS Safety Report 17337401 (Version 3)
Quarter: 2020Q2

REPORT INFORMATION
  Report Type: Report from Study
  Country: US (occurrence: US)
  Receive Date: 20200129
  Receipt Date: 20200417
  Transmission Date: 20200713
  Serious: No
  Sender: FDA-Public Use
  Company Number: NVSC2020US021454

PATIENT
  Age: 72 Year
  Sex: Female

DRUGS (1)
  1. COSENTYX [Suspect]
     Active Substance: SECUKINUMAB
     Indication: PSORIASIS
     Dosage: UNK UNK, QMO
     Route: 058
     Dates: start: 201910

REACTIONS (5)
  - Pruritus [Unknown]
  - Therapeutic product effect incomplete [Unknown]
  - Concomitant disease aggravated [Unknown]
  - Bronchitis [Unknown]
  - Urticaria [Unknown]

NARRATIVE: CASE EVENT DATE: 202001
